FAERS Safety Report 7406107-9 (Version None)
Quarter: 2011Q2

REPORT INFORMATION
  Report Type: 
  Country: None (occurrence: None)
  Receive Date: 20110411
  Receipt Date: 20110321
  Transmission Date: 20111010
  Serious: Yes (Other)
  Sender: FDA-Public Use
  Company Number: FR-SANOFI-AVENTIS-2011SA017486

PATIENT
  Age: 59 Year
  Sex: Male

DRUGS (8)
  1. ASPEGIC ENFANTS [Suspect]
     Route: 048
  2. STILNOX [Suspect]
     Route: 048
     Dates: start: 20020101
  3. LEXOMIL [Suspect]
     Route: 048
     Dates: start: 20020101
  4. IMUREL [Suspect]
     Route: 048
     Dates: start: 20021026, end: 20110103
  5. TAHOR [Suspect]
     Route: 048
  6. COZAAR [Suspect]
     Route: 048
  7. ESOMEPRAZOLE [Suspect]
     Route: 048
  8. MEDROL [Suspect]
     Route: 048
     Dates: start: 20020101

REACTIONS (1)
  - SQUAMOUS CELL CARCINOMA [None]
